FAERS Safety Report 4353503-2 (Version None)
Quarter: 2004Q2

REPORT INFORMATION
  Report Type: 
  Country: None (occurrence: None)
  Receive Date: 20040505
  Receipt Date: 20040316
  Transmission Date: 20050107
  Serious: Yes (Hospitalization)
  Sender: FDA-Public Use
  Company Number: PHEH2004US03118

PATIENT
  Age: 13 Day
  Sex: Female
  Weight: 4 kg

DRUGS (2)
  1. PARLODEL [Suspect]
     Route: 064
     Dates: start: 20030501, end: 20030801
  2. GLUCOPHAGE [Suspect]
     Route: 064
     Dates: start: 20030101

REACTIONS (7)
  - BLOOD CALCIUM DECREASED [None]
  - CONVULSION [None]
  - CONVULSION NEONATAL [None]
  - DRUG EXPOSURE DURING PREGNANCY [None]
  - NEONATAL TACHYPNOEA [None]
  - OSTEOPETROSIS [None]
  - TACHYPNOEA [None]
